FAERS Safety Report 7394269-1 (Version None)
Quarter: 2011Q2

REPORT INFORMATION
  Report Type: 
  Country: None (occurrence: None)
  Receive Date: 20110405
  Receipt Date: 20110328
  Transmission Date: 20111010
  Serious: Yes (Other)
  Sender: FDA-Public Use
  Company Number: US-ASTRAZENECA-2011SE17763

PATIENT
  Age: 18979 Day
  Sex: Female

DRUGS (6)
  1. VISTARIL [Concomitant]
     Dates: start: 20061019
  2. LIPITOR [Concomitant]
     Dates: start: 20061019
  3. CYMBALTA [Concomitant]
     Dates: start: 20061019
  4. LYRICA [Concomitant]
     Dates: start: 20061019
  5. AMBIEN [Concomitant]
     Indication: INSOMNIA
     Dates: start: 20090519
  6. SEROQUEL [Suspect]
     Dosage: 300 MG TWO QHS
     Route: 048
     Dates: start: 20061019

REACTIONS (1)
  - NEUROPATHY PERIPHERAL [None]
